FAERS Safety Report 17169744 (Version 1)
Quarter: 2019Q4

REPORT INFORMATION
  Report Type: Spontaneous
  Country: CN (occurrence: CN)
  Receive Date: 20191218
  Receipt Date: 20191218
  Transmission Date: 20200122
  Serious: Yes (Other)
  Sender: FDA-Public Use
  Company Number: CN-ASTELLAS-2019US049808

PATIENT
  Age: 36 Year
  Sex: Male

DRUGS (15)
  1. METHYLPREDNISOLONE. [Concomitant]
     Active Substance: METHYLPREDNISOLONE
     Indication: RENAL TRANSPLANT
     Dosage: 500 MG, ONCE DAILY (DURING OPERATION AND ON THE 1ST AND 2ND DAYS AFTER OPERATION )
     Route: 065
     Dates: start: 20160731, end: 20160802
  2. TACROLIMUS. [Interacting]
     Active Substance: TACROLIMUS
     Indication: RENAL TRANSPLANT
     Dosage: 3.5 MG, EVERY 12 HOURS (MAINTAINED AT 8~10 NG/DL)
     Route: 065
     Dates: start: 20160801, end: 201608
  3. PREDNISONE. [Concomitant]
     Active Substance: PREDNISONE
     Indication: RENAL TRANSPLANT
     Dosage: 50 MG, ONCE DAILY (ON THE 3RD DAY AFTER OPERATION)
     Route: 065
     Dates: start: 20160803
  4. LINEZOLID. [Concomitant]
     Active Substance: LINEZOLID
     Indication: INFECTION PROPHYLAXIS
     Dosage: UNK UNK, UNKNOWN FREQ.
     Route: 065
     Dates: start: 2016, end: 201608
  5. POSACONAZOLE [Interacting]
     Active Substance: POSACONAZOLE
     Indication: PULMONARY MUCORMYCOSIS
     Route: 065
     Dates: start: 20160904, end: 20161205
  6. MYCOPHENOLATE MOFETIL. [Suspect]
     Active Substance: MYCOPHENOLATE MOFETIL
     Route: 065
     Dates: start: 20160811
  7. PREDNISONE. [Concomitant]
     Active Substance: PREDNISONE
     Route: 065
     Dates: start: 2016
  8. FUROSEMIDE. [Concomitant]
     Active Substance: FUROSEMIDE
     Indication: POLYURIA
     Dosage: UNK UNK, UNKNOWN FREQ.
     Route: 065
     Dates: start: 201608
  9. TACROLIMUS. [Interacting]
     Active Substance: TACROLIMUS
     Dosage: 2.5 MG, EVERY 12 HOURS (MAINTAINED AT 5~8  NG/DL)
     Route: 065
     Dates: start: 20160811, end: 201609
  10. TACROLIMUS. [Interacting]
     Active Substance: TACROLIMUS
     Dosage: 0.5  MG, EVERY 12 HOURS (MAINTAINED AT 5~8  NG/DL)
     Route: 065
     Dates: start: 201609, end: 201612
  11. TACROLIMUS. [Interacting]
     Active Substance: TACROLIMUS
     Dosage: UNK, UNKNOWN FREQ.
     Route: 065
     Dates: start: 201612
  12. MICAFUNGIN. [Suspect]
     Active Substance: MICAFUNGIN SODIUM
     Indication: INFECTION PROPHYLAXIS
     Dosage: UNK UNK, UNKNOWN FREQ.
     Route: 065
     Dates: start: 2016, end: 201608
  13. ANTITHYMOCYTE IMMUNOGLOBULIN (RABBIT) [Concomitant]
     Active Substance: LAPINE T-LYMPHOCYTE IMMUNE GLOBULIN
     Indication: RENAL TRANSPLANT
     Route: 065
     Dates: start: 20160801, end: 20160807
  14. MYCOPHENOLATE MOFETIL. [Suspect]
     Active Substance: MYCOPHENOLATE MOFETIL
     Indication: RENAL TRANSPLANT
     Route: 065
     Dates: start: 20160801, end: 201608
  15. MEROPENEM. [Concomitant]
     Active Substance: MEROPENEM
     Indication: INFECTION PROPHYLAXIS
     Dosage: UNK UNK, UNKNOWN FREQ.
     Route: 065
     Dates: start: 2016, end: 201608

REACTIONS (4)
  - Immunosuppressant drug level increased [Recovered/Resolved]
  - Drug interaction [Unknown]
  - Pulmonary mucormycosis [Recovered/Resolved]
  - Product use in unapproved indication [Unknown]

NARRATIVE: CASE EVENT DATE: 20160808
